FAERS Safety Report 5078617-3 (Version None)
Quarter: 2006Q3

REPORT INFORMATION
  Report Type: 
  Country: None (occurrence: None)
  Receive Date: 20060810
  Receipt Date: 20060810
  Transmission Date: 20061208
  Serious: No
  Sender: FDA-Public Use
  Company Number: None

PATIENT
  Age: 27 Year
  Sex: Male
  Weight: 89.8122 kg

DRUGS (1)
  1. TRILEPTAL [Suspect]
     Indication: AFFECTIVE DISORDER
     Dosage: 600 MG HS PO
     Route: 048
     Dates: start: 20060626, end: 20060727

REACTIONS (1)
  - BALANCE DISORDER [None]
